FAERS Safety Report 21447817 (Version 3)
Quarter: 2022Q4

REPORT INFORMATION
  Report Type: Spontaneous
  Country: CA (occurrence: CA)
  Receive Date: 20221012
  Receipt Date: 20221128
  Transmission Date: 20230113
  Serious: Yes (Life-Threatening)
  Sender: FDA-Public Use
  Company Number: CA-BAUSCH-BL-2022-023425

PATIENT
  Age: 64 Year
  Sex: Female

DRUGS (14)
  1. DEXAMETHASONE [Suspect]
     Active Substance: DEXAMETHASONE
     Indication: Systemic bacterial infection
     Route: 065
  2. DEXAMETHASONE [Suspect]
     Active Substance: DEXAMETHASONE
     Indication: Atypical mycobacterial infection
  3. ETHAMBUTOL [Suspect]
     Active Substance: ETHAMBUTOL HYDROCHLORIDE
     Indication: Systemic bacterial infection
     Route: 065
  4. ETHAMBUTOL [Suspect]
     Active Substance: ETHAMBUTOL HYDROCHLORIDE
     Indication: Atypical mycobacterial infection
  5. RIFAMPIN [Suspect]
     Active Substance: RIFAMPIN
     Indication: Systemic bacterial infection
     Route: 065
  6. RIFAMPIN [Suspect]
     Active Substance: RIFAMPIN
     Indication: Atypical mycobacterial infection
  7. CEFTAZIDIME [Suspect]
     Active Substance: CEFTAZIDIME
     Indication: Systemic bacterial infection
     Dosage: RECEIVED A SINGLE DOSE OF INTRAVITREAL CEFTAZIDIME
     Route: 050
  8. CEFTAZIDIME [Suspect]
     Active Substance: CEFTAZIDIME
     Indication: Atypical mycobacterial infection
  9. VANCOMYCIN [Suspect]
     Active Substance: VANCOMYCIN
     Indication: Systemic bacterial infection
     Dosage: RECEIVED A SINGLE DOSE OF INTRAVITREAL VANCOMYCIN
     Route: 050
  10. VANCOMYCIN [Suspect]
     Active Substance: VANCOMYCIN
     Indication: Atypical mycobacterial infection
  11. AZITHROMYCIN [Suspect]
     Active Substance: AZITHROMYCIN
     Indication: Systemic bacterial infection
     Route: 042
  12. AZITHROMYCIN [Suspect]
     Active Substance: AZITHROMYCIN
     Indication: Atypical mycobacterial infection
  13. MOXIFLOXACIN [Suspect]
     Active Substance: MOXIFLOXACIN
     Indication: Systemic bacterial infection
     Route: 065
  14. MOXIFLOXACIN [Suspect]
     Active Substance: MOXIFLOXACIN
     Indication: Atypical mycobacterial infection

REACTIONS (1)
  - Therapy non-responder [Unknown]
